FAERS Safety Report 4622078-2 (Version None)
Quarter: 2005Q1

REPORT INFORMATION
  Report Type: 
  Country: None (occurrence: None)
  Receive Date: 20050329
  Receipt Date: 20050314
  Transmission Date: 20050727
  Serious: Yes (Hospitalization)
  Sender: FDA-Public Use
  Company Number: TRP_0086_2005

PATIENT
  Age: 65 Year
  Sex: Female

DRUGS (15)
  1. RIBASPHERE [Suspect]
     Indication: HEPATITIS C
     Dates: start: 20041111
  2. PEG-INTRON [Suspect]
     Indication: HEPATITIS C
     Dates: start: 20041111
  3. ALBUTEROL SULPHATE [Concomitant]
  4. CARDIZEM [Concomitant]
  5. COMBIVENT [Concomitant]
  6. LASIX [Concomitant]
  7. NITRO-DUR [Concomitant]
  8. NOVOLOG [Concomitant]
  9. PEPCID [Concomitant]
  10. REGLAN [Concomitant]
  11. ULTRAM [Concomitant]
  12. ALBUTERON INHALATION SOLUTION [Concomitant]
  13. COMBIVENT AEROSOL SOLUTION [Concomitant]
  14. NITRO-DUR (ORIGINAL) TRANSDERMAL [Concomitant]
  15. NOVOLOG SOLUTION [Concomitant]

REACTIONS (3)
  - BLOOD GLUCOSE INCREASED [None]
  - DRUG HYPERSENSITIVITY [None]
  - PULMONARY THROMBOSIS [None]
